FAERS Safety Report 15147624 (Version 3)
Quarter: 2019Q4

REPORT INFORMATION
  Report Type: Spontaneous
  Country: US (occurrence: US)
  Receive Date: 20180716
  Receipt Date: 20191206
  Transmission Date: 20200122
  Serious: No
  Sender: FDA-Public Use
  Company Number: US-PFIZER INC-2018282111

PATIENT
  Age: 61 Year
  Sex: Female

DRUGS (3)
  1. LYRICA [Suspect]
     Active Substance: PREGABALIN
     Indication: FIBROMYALGIA
     Dosage: UNK, 2X/DAY
  2. LYRICA [Suspect]
     Active Substance: PREGABALIN
     Dosage: 150 MG, 3X/DAY
     Route: 048
  3. LYRICA [Suspect]
     Active Substance: PREGABALIN
     Dosage: 1 DF, 3X/DAY
     Route: 048

REACTIONS (1)
  - Pain in extremity [Unknown]
